FAERS Safety Report 9757417 (Version 1)
Quarter: 2013Q4

REPORT INFORMATION
  Report Type: Spontaneous
  Country: GB (occurrence: GB)
  Receive Date: 20131214
  Receipt Date: 20131214
  Transmission Date: 20140711
  Serious: Yes (Other)
  Sender: FDA-Public Use
  Company Number: GB-THROMBOGENICS NV-JET-2013-251

PATIENT
  Sex: 0

DRUGS (1)
  1. JETREA [Suspect]
     Indication: PRODUCT USED FOR UNKNOWN INDICATION
     Dosage: 0.125 MG, ONE TIME DOSE
     Route: 031
     Dates: start: 2013, end: 2013

REACTIONS (1)
  - Retinal detachment [Recovered/Resolved]
